FAERS Safety Report 6964019-9 (Version None)
Quarter: 2010Q3

REPORT INFORMATION
  Report Type: 
  Country: None (occurrence: None)
  Receive Date: 20100902
  Receipt Date: 20100902
  Transmission Date: 20110219
  Serious: Yes (Other)
  Sender: FDA-Public Use
  Company Number: None

PATIENT
  Age: 90 Year
  Sex: Female

DRUGS (1)
  1. DIPHENHYDRAMINE HCL [Suspect]
     Indication: ALLERGY TO ARTHROPOD STING
     Dosage: 2 TEASPOONSFUL ONCE PO
     Route: 048
     Dates: start: 20100828, end: 20100901

REACTIONS (3)
  - GAIT DISTURBANCE [None]
  - STUPOR [None]
  - VISION BLURRED [None]
